FAERS Safety Report 11758938 (Version 1)
Quarter: 2015Q4

REPORT INFORMATION
  Report Type: Spontaneous
  Country: CA (occurrence: CA)
  Receive Date: 20151120
  Receipt Date: 20151120
  Transmission Date: 20160304
  Serious: Yes (Other)
  Sender: FDA-Public Use
  Company Number: CA-JNJFOC-20151114663

PATIENT
  Age: 42 Year
  Sex: Female

DRUGS (3)
  1. MICRONOR [Suspect]
     Active Substance: NORETHINDRONE
     Indication: PRODUCT USED FOR UNKNOWN INDICATION
     Route: 048
  2. ADVAIR HFA [Suspect]
     Active Substance: FLUTICASONE PROPIONATE\SALMETEROL XINAFOATE
     Indication: WHEEZING
     Route: 055
  3. RAN CLARITHROMYCIN [Suspect]
     Active Substance: CLARITHROMYCIN
     Indication: RESPIRATORY TRACT INFECTION
     Route: 065

REACTIONS (3)
  - Raynaud^s phenomenon [Unknown]
  - Polymenorrhoea [Unknown]
  - Chest pain [Unknown]
